FAERS Safety Report 11840248 (Version 1)
Quarter: 2015Q4

REPORT INFORMATION
  Report Type: Spontaneous
  Country: US (occurrence: US)
  Receive Date: 20151216
  Receipt Date: 20151216
  Transmission Date: 20160305
  Serious: No
  Sender: FDA-Public Use
  Company Number: US-PERRIGO-15US010424

PATIENT
  Age: 89 Year
  Sex: Male
  Weight: 85.26 kg

DRUGS (4)
  1. BENICAR [Concomitant]
     Active Substance: OLMESARTAN MEDOXOMIL
     Indication: HYPERTENSION
     Dosage: 40 MG, UNKNOWN
     Route: 048
  2. TROSPIUM CHLORIDE 60 MG 1G4 [Suspect]
     Active Substance: TROSPIUM CHLORIDE
     Indication: DYSURIA
     Dosage: 60 MG, QD
     Route: 048
     Dates: start: 20150917, end: 20150922
  3. VITAMIN B12 [Concomitant]
     Active Substance: CYANOCOBALAMIN
     Indication: SUPPLEMENTATION THERAPY
     Dosage: UNK
     Route: 048
  4. AMLODIPINE [Concomitant]
     Active Substance: AMLODIPINE BESYLATE
     Indication: HYPERTENSION
     Dosage: 2.5 MG, UNKNOWN
     Route: 048

REACTIONS (2)
  - Pollakiuria [Recovered/Resolved]
  - Insomnia [Not Recovered/Not Resolved]

NARRATIVE: CASE EVENT DATE: 20150919
